FAERS Safety Report 6203999-6 (Version None)
Quarter: 2009Q2

REPORT INFORMATION
  Report Type: 
  Country: None (occurrence: None)
  Receive Date: 20090526
  Receipt Date: 20090526
  Transmission Date: 20091009
  Serious: Yes (Other)
  Sender: FDA-Public Use
  Company Number: None

PATIENT
  Sex: Female
  Weight: 65.7716 kg

DRUGS (1)
  1. CHANTIX [Suspect]
     Indication: SMOKING CESSATION THERAPY
     Dosage: 1.0 MG 2XDAY PO
     Route: 048
     Dates: start: 20090512, end: 20090525

REACTIONS (4)
  - FATIGUE [None]
  - HYPERSOMNIA [None]
  - PRESYNCOPE [None]
  - TREMOR [None]
